FAERS Safety Report 7008442-5 (Version None)
Quarter: 2010Q3

REPORT INFORMATION
  Report Type: 
  Country: None (occurrence: None)
  Receive Date: 20100721
  Receipt Date: 20100525
  Transmission Date: 20110219
  Serious: No
  Sender: FDA-Public Use
  Company Number: LMI-2010-00450(0)

PATIENT
  Age: 90 Year
  Sex: Female
  Weight: 63.5036 kg

DRUGS (3)
  1. ABLAVAR [Suspect]
     Indication: INTERMITTENT CLAUDICATION
     Dosage: VIA POWER INJECTOR AT 1 ML/SEC (7.5 ML)
     Dates: start: 20100525, end: 20100525
  2. ABLAVAR [Suspect]
     Indication: NUCLEAR MAGNETIC RESONANCE IMAGING ABDOMINAL
     Dosage: VIA POWER INJECTOR AT 1 ML/SEC (7.5 ML)
     Dates: start: 20100525, end: 20100525
  3. COUMADIN [Concomitant]

REACTIONS (1)
  - VOMITING [None]
